FAERS Safety Report 17094940 (Version 1)
Quarter: 2019Q4

REPORT INFORMATION
  Report Type: Spontaneous
  Country: FR (occurrence: FR)
  Receive Date: 20191130
  Receipt Date: 20191130
  Transmission Date: 20200122
  Serious: Yes (Death, Hospitalization)
  Sender: FDA-Public Use
  Company Number: FR-ACCORD-162802

PATIENT
  Age: 74 Year
  Sex: Male

DRUGS (13)
  1. ZIEXTENZO [Concomitant]
     Active Substance: PEGFILGRASTIM-BMEZ
     Indication: NEOPLASM MALIGNANT
     Dosage: STRENGTH: 6 MG
     Route: 058
     Dates: start: 20190930, end: 20190930
  2. ELIQUIS [Concomitant]
     Active Substance: APIXABAN
     Indication: ARRHYTHMIA
     Dosage: STRENGTH: 5 MG
     Route: 048
     Dates: start: 20190719, end: 20191006
  3. DIFFU K [Concomitant]
     Active Substance: POTASSIUM CHLORIDE
     Route: 048
     Dates: start: 20190928, end: 20191004
  4. ETOPOSIDE. [Interacting]
     Active Substance: ETOPOSIDE
     Indication: SMALL CELL LUNG CANCER METASTATIC
     Route: 042
     Dates: start: 20190928, end: 20190929
  5. NOVORAPID [Concomitant]
     Active Substance: INSULIN ASPART
     Indication: TYPE 2 DIABETES MELLITUS
     Route: 058
     Dates: start: 201909
  6. HUMALOG [Concomitant]
     Active Substance: INSULIN LISPRO
     Indication: DIABETES MELLITUS
     Dosage: SELON PROTOCOLE
     Route: 058
     Dates: start: 20190928, end: 20191004
  7. ABASAGLAR [Concomitant]
     Active Substance: INSULIN GLARGINE
     Route: 058
     Dates: start: 201909
  8. SOLUPRED [Concomitant]
     Route: 048
     Dates: start: 20191001
  9. OXYCODONE/OXYCODONE HYDROCHLORIDE/OXYCODONE PECTINATE/OXYCODONE TEREPHTHALATE [Concomitant]
     Active Substance: OXYCODONE
     Indication: PAIN
     Route: 048
     Dates: start: 20191001
  10. SOTALOL. [Concomitant]
     Active Substance: SOTALOL
     Indication: ARRHYTHMIA
     Route: 048
     Dates: start: 20190719, end: 201909
  11. CARBOPLATIN. [Suspect]
     Active Substance: CARBOPLATIN
     Indication: SMALL CELL LUNG CANCER METASTATIC
     Route: 041
     Dates: start: 20190928, end: 20190928
  12. METHYLPREDNISOLONE. [Concomitant]
     Active Substance: METHYLPREDNISOLONE
     Indication: SMALL CELL LUNG CANCER METASTATIC
     Route: 042
     Dates: start: 20190928, end: 20190930
  13. ZYMAD [Concomitant]
     Active Substance: CHOLECALCIFEROL
     Dosage: ORAL SOLUTION IN AMPOULE, STRENGTH: 80 000 IU
     Route: 048
     Dates: start: 20190928, end: 20190928

REACTIONS (4)
  - Thrombocytopenia [Recovered/Resolved]
  - Neutropenia [Recovered/Resolved]
  - Anaemia [Not Recovered/Not Resolved]
  - Drug interaction [Unknown]

NARRATIVE: CASE EVENT DATE: 20191002
